FAERS Safety Report 15214874 (Version 2)
Quarter: 2019Q2

REPORT INFORMATION
  Report Type: Spontaneous
  Country: IT (occurrence: IT)
  Receive Date: 20180730
  Receipt Date: 20190530
  Transmission Date: 20190711
  Serious: Yes (Hospitalization)
  Sender: FDA-Public Use
  Company Number: IT-PFIZER INC-2018300642

PATIENT
  Age: 55 Year
  Sex: Female

DRUGS (6)
  1. TAVOR (LORAZEPAM) [Suspect]
     Active Substance: LORAZEPAM
     Dosage: 10 MG, 1X/DAY
     Route: 048
     Dates: start: 20180513, end: 20180516
  2. SERTRALINE HCL [Suspect]
     Active Substance: SERTRALINE HYDROCHLORIDE
     Dosage: 200 MG, 1X/DAY
     Route: 048
     Dates: start: 20180513, end: 20180516
  3. RIVOTRIL [Suspect]
     Active Substance: CLONAZEPAM
     Dosage: 60 GTT, 1X/DAY
     Route: 048
     Dates: start: 20180513, end: 20180516
  4. NOZINAN [Suspect]
     Active Substance: LEVOMEPROMAZINE
     Dosage: 100 MG, 1X/DAY
     Route: 048
     Dates: start: 20180513, end: 20180516
  5. LYRICA [Suspect]
     Active Substance: PREGABALIN
     Dosage: UNK
     Route: 048
     Dates: start: 20180513, end: 20180516
  6. OLANZAPINE. [Suspect]
     Active Substance: OLANZAPINE
     Dosage: UNK
     Route: 048
     Dates: start: 20180513, end: 20180516

REACTIONS (4)
  - Intentional overdose [Unknown]
  - Intentional self-injury [Recovered/Resolved]
  - Drug abuse [Recovered/Resolved]
  - Fall [Recovered/Resolved]

NARRATIVE: CASE EVENT DATE: 20180516
